FAERS Safety Report 20440771 (Version 1)
Quarter: 2022Q1

REPORT INFORMATION
  Report Type: Report from Study
  Country: NL (occurrence: NL)
  Receive Date: 20220207
  Receipt Date: 20220207
  Transmission Date: 20220423
  Serious: Yes (Hospitalization)
  Sender: FDA-Public Use
  Company Number: NL-AstraZeneca-2022A006774

PATIENT
  Age: 1 Year
  Sex: Female
  Weight: 11.1 kg

DRUGS (4)
  1. SYNAGIS [Suspect]
     Active Substance: PALIVIZUMAB
     Indication: Heart disease congenital
     Route: 030
     Dates: start: 20201016
  2. NEXIUM [Concomitant]
     Active Substance: ESOMEPRAZOLE MAGNESIUM
     Indication: Product used for unknown indication
     Dosage: 10.0MG UNKNOWN
     Route: 065
  3. XYLOMETAZOLINE [Concomitant]
     Active Substance: XYLOMETAZOLINE
     Indication: Product used for unknown indication
  4. ARTELAC OOGDRUPPELS [Concomitant]
     Indication: Product used for unknown indication
     Dosage: 3.2MG/ML UNKNOWN

REACTIONS (1)
  - Metapneumovirus infection [Recovered/Resolved]

NARRATIVE: CASE EVENT DATE: 20211220
